FAERS Safety Report 19840341 (Version 1)
Quarter: 2021Q3

REPORT INFORMATION
  Report Type: Spontaneous
  Country: US (occurrence: US)
  Receive Date: 20210916
  Receipt Date: 20210916
  Transmission Date: 20211014
  Serious: Yes (Hospitalization)
  Sender: FDA-Public Use
  Company Number: None

PATIENT
  Age: 71 Year
  Sex: Male

DRUGS (1)
  1. REGEN?COV [Suspect]
     Active Substance: CASIRIVIMAB\IMDEVIMAB
     Indication: CORONAVIRUS TEST POSITIVE

REACTIONS (6)
  - Blood pressure abnormal [None]
  - Syncope [None]
  - Contusion [None]
  - Arthralgia [None]
  - Pulse abnormal [None]
  - Fall [None]

NARRATIVE: CASE EVENT DATE: 20210916
